FAERS Safety Report 4388236-X (Version None)
Quarter: 2004Q2

REPORT INFORMATION
  Report Type: 
  Country: None (occurrence: None)
  Receive Date: 20040625
  Receipt Date: 20040621
  Transmission Date: 20050107
  Serious: Yes (Death)
  Sender: FDA-Public Use
  Company Number: USA-2003-0011298

PATIENT
  Age: 59 Year
  Sex: Female
  Weight: 96.1 kg

DRUGS (6)
  1. MORPHINE SULFATE [Suspect]
     Dosage: UNK MG
     Route: 065
  2. CITALOPRAM (CITALOPRAM) [Suspect]
     Dosage: UNK
     Route: 065
  3. DIAZEPAM [Suspect]
     Dosage: UNK
     Route: 065
  4. QUININE (QUININE) [Suspect]
     Dosage: UNK
     Route: 065
  5. CARISOPRODOL (CARISOPRODOL) [Suspect]
     Dosage: UNK
     Route: 065
  6. MEPROBAMATE [Suspect]
     Dosage: UNK
     Route: 065

REACTIONS (5)
  - ACCIDENT [None]
  - ACCIDENTAL OVERDOSE [None]
  - ATHEROSCLEROSIS [None]
  - HEPATIC CIRRHOSIS [None]
  - MULTIPLE DRUG OVERDOSE [None]
